FAERS Safety Report 9832957 (Version 2)
Quarter: 2014Q1

REPORT INFORMATION
  Report Type: Spontaneous
  Country: US (occurrence: US)
  Receive Date: 20140121
  Receipt Date: 20140121
  Transmission Date: 20141002
  Serious: Yes (Other)
  Sender: FDA-Public Use
  Company Number: US-INCYTE CORPORATION-2013IN002773

PATIENT
  Age: 77 Year
  Sex: Female
  Weight: 65.31 kg

DRUGS (7)
  1. JAKAFI [Suspect]
     Indication: MYELOPROLIFERATIVE DISORDER
     Dosage: 15 MG, BID
     Route: 048
     Dates: start: 20130927, end: 201310
  2. JAKAFI [Suspect]
     Dosage: 5 MG, BID
     Route: 048
     Dates: start: 201310, end: 20140107
  3. ASA [Concomitant]
  4. LOVASTATIN [Concomitant]
  5. FE                                 /00023514/ [Concomitant]
  6. ATENOLOL [Concomitant]
  7. POTASSIUM [Concomitant]

REACTIONS (1)
  - Hyperkalaemia [Recovering/Resolving]
